FAERS Safety Report 9349832 (Version 1)
Quarter: 2013Q2

REPORT INFORMATION
  Report Type: Spontaneous
  Country: US (occurrence: None)
  Receive Date: 20130611
  Receipt Date: 20130611
  Transmission Date: 20140414
  Serious: Yes (Other)
  Sender: FDA-Public Use
  Company Number: 2013P1006839

PATIENT
  Age: 16 Year
  Sex: Male

DRUGS (2)
  1. MYORISAN [Suspect]
     Indication: ACNE
     Dates: start: 20130104, end: 20130513
  2. MYORISAN [Suspect]
     Indication: ACNE
     Dates: start: 20130104, end: 20130404

REACTIONS (2)
  - Mood altered [None]
  - Irritability [None]
